FAERS Safety Report 25983841 (Version 1)
Quarter: 2025Q4

REPORT INFORMATION
  Report Type: Spontaneous
  Country: US (occurrence: None)
  Receive Date: 20251030
  Receipt Date: 20251030
  Transmission Date: 20260118
  Serious: Yes (Death)
  Sender: FDA-CTU
  Company Number: None

PATIENT
  Age: 40 Year
  Sex: Female

DRUGS (2)
  1. TOLVAPTAN [Suspect]
     Active Substance: TOLVAPTAN
     Dosage: 30MG  15MG  AM AND PM
  2. TOLVAPTAN [Suspect]
     Active Substance: TOLVAPTAN
     Dosage: FREQUENCY : AT BEDTIME;?

REACTIONS (1)
  - Cervix carcinoma [None]
